FAERS Safety Report 16728240 (Version 1)
Quarter: 2019Q3

REPORT INFORMATION
  Report Type: Spontaneous
  Country: US (occurrence: US)
  Receive Date: 20190822
  Receipt Date: 20190822
  Transmission Date: 20191005
  Serious: Yes (Other)
  Sender: FDA-Public Use
  Company Number: US-ASTELLAS-2019US032618

PATIENT
  Age: 64 Year
  Sex: Male

DRUGS (1)
  1. VESICARE [Suspect]
     Active Substance: SOLIFENACIN SUCCINATE
     Indication: POLLAKIURIA
     Route: 065

REACTIONS (6)
  - Hepatic enzyme increased [Unknown]
  - Neuropathy peripheral [Unknown]
  - Erectile dysfunction [Unknown]
  - Urinary incontinence [Unknown]
  - Drug ineffective [Unknown]
  - Bladder obstruction [Unknown]
